FAERS Safety Report 9033559 (Version 1)
Quarter: 2013Q1

REPORT INFORMATION
  Report Type: Other
  Country: SE (occurrence: SE)
  Receive Date: 20130128
  Receipt Date: 20130128
  Transmission Date: 20140127
  Serious: Yes (Other)
  Sender: FDA-Public Use
  Company Number: SE-NICOBRDEVP-2013-01150

PATIENT
  Age: 71 Year
  Sex: Male

DRUGS (4)
  1. CITALOPRAM HYDROBROMIDE (UNKNOWN) [Suspect]
     Indication: PRODUCT USED FOR UNKNOWN INDICATION
     Dosage: UNK, UNKNOWN
     Route: 065
  2. METFORMIN HYDROCHLORIDE (UNKNOWN) [Suspect]
     Indication: PRODUCT USED FOR UNKNOWN INDICATION
  3. KALEORID [Suspect]
     Indication: PRODUCT USED FOR UNKNOWN INDICATION
  4. METOLAZONE [Suspect]
     Indication: PRODUCT USED FOR UNKNOWN INDICATION

REACTIONS (4)
  - Fatigue [Unknown]
  - Dehydration [Unknown]
  - Apathy [Unknown]
  - Nausea [Unknown]
